FAERS Safety Report 25835883 (Version 1)
Quarter: 2025Q3

REPORT INFORMATION
  Report Type: Spontaneous
  Country: US (occurrence: None)
  Receive Date: 20250922
  Receipt Date: 20250922
  Transmission Date: 20251020
  Serious: Yes (Hospitalization)
  Sender: FDA-CTU
  Company Number: None

PATIENT
  Age: 57 Year
  Sex: Female
  Weight: 68.4 kg

DRUGS (10)
  1. GLYCINE\TIRZEPATIDE [Suspect]
     Active Substance: GLYCINE\TIRZEPATIDE
     Indication: Weight decreased
     Dosage: OTHER QUANTITY : 1 INJECTION(S);?OTHER FREQUENCY : WEEKLY;?
     Route: 058
     Dates: start: 20250831, end: 20250907
  2. Inspire Sleep Apnea Implant [Concomitant]
  3. VALACYCLOVIR [Concomitant]
     Active Substance: VALACYCLOVIR HYDROCHLORIDE
  4. HYDROXYZINE [Concomitant]
     Active Substance: HYDROXYZINE HYDROCHLORIDE
  5. IMITREX [Concomitant]
     Active Substance: SUMATRIPTAN SUCCINATE
  6. PRAVASTATIN [Concomitant]
     Active Substance: PRAVASTATIN
  7. BUPROPION [Concomitant]
     Active Substance: BUPROPION
  8. DOXYCYCLINE [Concomitant]
     Active Substance: DOXYCYCLINE
  9. IBUPROFEN [Concomitant]
     Active Substance: IBUPROFEN
  10. TYLENOL [Concomitant]
     Active Substance: ACETAMINOPHEN

REACTIONS (11)
  - Malaise [None]
  - Nausea [None]
  - Product substitution issue [None]
  - Dizziness [None]
  - Asthenia [None]
  - Fatigue [None]
  - Anxiety [None]
  - Diarrhoea [None]
  - Headache [None]
  - Hypertension [None]
  - Hypotension [None]

NARRATIVE: CASE EVENT DATE: 20250914
